FAERS Safety Report 9924286 (Version 6)
Quarter: 2014Q2

REPORT INFORMATION
  Report Type: Report from Study
  Country: CA (occurrence: CA)
  Receive Date: 20140226
  Receipt Date: 20140414
  Transmission Date: 20141212
  Serious: Yes (Other)
  Sender: FDA-Public Use
  Company Number: CA-ROCHE-1138101

PATIENT
  Age: 60 Year
  Sex: Female
  Weight: 48 kg

DRUGS (14)
  1. RITUXAN [Suspect]
     Indication: RHEUMATOID ARTHRITIS
     Dosage: 09/JUL/2013: LATEST DOSE OF RITUXIMAB
     Route: 042
     Dates: start: 20120919
  2. BENADRYL (CANADA) [Suspect]
     Indication: PREMEDICATION
     Route: 048
  3. PLAQUENIL [Concomitant]
  4. LOSEC [Concomitant]
  5. FOSAMAX [Concomitant]
  6. LEUCOVORIN [Concomitant]
  7. VITAMIN B12 [Concomitant]
  8. TYLENOL #3 (CANADA) [Concomitant]
  9. ZOPICLONE [Concomitant]
  10. VOLTAREN [Concomitant]
  11. DIPHENHYDRAMINE HCL [Concomitant]
     Indication: PREMEDICATION
     Route: 048
     Dates: start: 20120919
  12. ACETAMINOPHEN [Concomitant]
     Indication: PREMEDICATION
     Route: 048
     Dates: start: 20120919
  13. METHOTREXATE [Concomitant]
  14. METHYLPREDNISOLONE [Concomitant]
     Indication: PREMEDICATION
     Route: 042
     Dates: start: 20120919

REACTIONS (13)
  - Neuralgia [Not Recovered/Not Resolved]
  - Chest pain [Recovered/Resolved]
  - Rheumatoid arthritis [Not Recovered/Not Resolved]
  - Nervousness [Not Recovered/Not Resolved]
  - Malaise [Recovered/Resolved]
  - Scratch [Recovering/Resolving]
  - Somnolence [Recovered/Resolved]
  - Headache [Recovered/Resolved]
  - Nasopharyngitis [Unknown]
  - Sinusitis [Recovered/Resolved]
  - Fatigue [Unknown]
  - Alopecia [Unknown]
  - Flushing [Recovered/Resolved]
